FAERS Safety Report 9873002 (Version 2)
Quarter: 2014Q1

REPORT INFORMATION
  Report Type: Spontaneous
  Country: US (occurrence: US)
  Receive Date: 20140206
  Receipt Date: 20140206
  Transmission Date: 20141002
  Serious: No
  Sender: FDA-Public Use
  Company Number: US-ACORDA-ACO_29280_2012

PATIENT
  Age: 43 Year
  Sex: Male
  Weight: 56.69 kg

DRUGS (5)
  1. AMPYRA [Suspect]
     Indication: GAIT DISTURBANCE
     Dosage: 10 MG, BID
     Route: 048
     Dates: start: 20111008, end: 2013
  2. AMPYRA [Suspect]
     Dosage: UNK
     Dates: start: 20120120, end: 201203
  3. AMPYRA [Suspect]
     Dosage: 10 MG, Q 12 HRS
     Route: 048
     Dates: start: 2012
  4. AMPYRA [Suspect]
     Dosage: 10 MG, BID
     Dates: end: 2013
  5. TYSABRI [Concomitant]
     Indication: PRODUCT USED FOR UNKNOWN INDICATION
     Dosage: UNK

REACTIONS (8)
  - Fall [Recovered/Resolved]
  - Injury [Recovered/Resolved]
  - Influenza like illness [Recovered/Resolved]
  - Fall [Recovered/Resolved]
  - Headache [Unknown]
  - Dizziness [Recovered/Resolved]
  - Drug dose omission [Unknown]
  - Inappropriate schedule of drug administration [Unknown]
